FAERS Safety Report 21090201 (Version 1)
Quarter: 2022Q3

REPORT INFORMATION
  Report Type: Report from Study
  Country: US (occurrence: US)
  Receive Date: 20220715
  Receipt Date: 20220715
  Transmission Date: 20221027
  Serious: Yes (Hospitalization, Other)
  Sender: FDA-Public Use
  Company Number: US-SA-2020SA010098

PATIENT
  Age: 48 Year
  Sex: Male

DRUGS (9)
  1. CARDIZEM [Suspect]
     Active Substance: DILTIAZEM HYDROCHLORIDE
     Indication: Chest pain
     Route: 065
  2. TERIFLUNOMIDE [Suspect]
     Active Substance: TERIFLUNOMIDE
     Indication: Multiple sclerosis
     Route: 048
     Dates: start: 20170609
  3. ASPIRIN [Suspect]
     Active Substance: ASPIRIN
     Indication: Chest pain
     Route: 065
  4. HYDROCHLOROTHIAZIDE [Suspect]
     Active Substance: HYDROCHLOROTHIAZIDE
     Indication: Chest pain
     Route: 065
  5. ISOSORBIDE MONONITRATE [Suspect]
     Active Substance: ISOSORBIDE MONONITRATE
     Indication: Chest pain
     Route: 065
  6. METOPROLOL [Suspect]
     Active Substance: METOPROLOL
     Indication: Chest pain
     Route: 065
  7. NITROGLYCERIN [Suspect]
     Active Substance: NITROGLYCERIN
     Indication: Chest pain
     Route: 060
  8. PSEUDOEPHEDRINE HYDROCHLORIDE [Suspect]
     Active Substance: PSEUDOEPHEDRINE HYDROCHLORIDE
     Indication: Product used for unknown indication
     Route: 065
  9. CANNABIDIOL\HERBALS [Suspect]
     Active Substance: CANNABIDIOL\HERBALS
     Indication: Product used for unknown indication
     Route: 065

REACTIONS (34)
  - Chest pain [Recovered/Resolved]
  - Gastrooesophageal reflux disease [Unknown]
  - Drug hypersensitivity [Unknown]
  - Multiple sclerosis [Unknown]
  - Cholelithiasis [Unknown]
  - Chest discomfort [Unknown]
  - Abdominal discomfort [Unknown]
  - Anxiety [Unknown]
  - Panic attack [Unknown]
  - Burning sensation [Unknown]
  - Influenza like illness [Unknown]
  - Illness [Unknown]
  - Malaise [Unknown]
  - Sluggishness [Unknown]
  - Lethargy [Unknown]
  - Flatulence [Not Recovered/Not Resolved]
  - Feeling abnormal [Unknown]
  - Fatigue [Unknown]
  - Seasonal allergy [Unknown]
  - Nasopharyngitis [Unknown]
  - Unevaluable event [Unknown]
  - Blood pressure increased [Recovered/Resolved]
  - Blood creatinine increased [Recovered/Resolved]
  - Myocardial infarction [Unknown]
  - Fatigue [Unknown]
  - Nervousness [Unknown]
  - Nausea [Unknown]
  - Sneezing [Unknown]
  - Throat clearing [Unknown]
  - Cough [Unknown]
  - Hypersensitivity [Unknown]
  - Lacrimation increased [Unknown]
  - Diarrhoea [Unknown]
  - Nausea [Unknown]

NARRATIVE: CASE EVENT DATE: 20180101
